FAERS Safety Report 23952509 (Version 1)
Quarter: 2024Q2

REPORT INFORMATION
  Report Type: Spontaneous
  Country: GB (occurrence: GB)
  Receive Date: 20240607
  Receipt Date: 20240607
  Transmission Date: 20240716
  Serious: Yes (Hospitalization, Congenital Anomaly)
  Sender: FDA-Public Use
  Company Number: GB-BIOMARINAP-GB-2024-158233

PATIENT

DRUGS (1)
  1. BRINEURA [Suspect]
     Active Substance: CERLIPONASE ALFA
     Indication: Neuronal ceroid lipofuscinosis
     Dosage: ,
     Route: 065

REACTIONS (6)
  - Urinary tract infection [Recovering/Resolving]
  - Generalised tonic-clonic seizure [Recovering/Resolving]
  - Myoclonus [Recovering/Resolving]
  - Depressed level of consciousness [Recovered/Resolved]
  - Petit mal epilepsy [Recovering/Resolving]
  - Partial seizures [Recovering/Resolving]
